FAERS Safety Report 5188642-X (Version None)
Quarter: 2006Q4

REPORT INFORMATION
  Report Type: 
  Country: None (occurrence: None)
  Receive Date: 20061221
  Receipt Date: 20060918
  Transmission Date: 20070319
  Serious: No
  Sender: FDA-Public Use
  Company Number: US-AMGEN-US194037

PATIENT
  Sex: Female
  Weight: 70.1 kg

DRUGS (2)
  1. ENBREL [Suspect]
     Indication: RHEUMATOID ARTHRITIS
     Route: 058
     Dates: start: 20060503, end: 20061017
  2. METHOTREXATE [Concomitant]

REACTIONS (5)
  - DIZZINESS [None]
  - EAR INFECTION [None]
  - FATIGUE [None]
  - RESTLESS LEGS SYNDROME [None]
  - SKIN INFECTION [None]
